FAERS Safety Report 8131736-7 (Version None)
Quarter: 2012Q1

REPORT INFORMATION
  Report Type: 
  Country: None (occurrence: None)
  Receive Date: 20120213
  Receipt Date: 20120202
  Transmission Date: 20120608
  Serious: No
  Sender: FDA-Public Use
  Company Number: US-PFIZER INC-2012026242

PATIENT
  Age: 81 Year
  Sex: Female

DRUGS (2)
  1. NIFEDIPINE [Suspect]
     Indication: BLOOD PRESSURE ABNORMAL
     Dosage: 30MG, UNK
     Route: 048
     Dates: start: 20110101
  2. AZITHROMYCIN [Suspect]
     Indication: PNEUMONIA
     Dosage: UNK

REACTIONS (3)
  - BALANCE DISORDER [None]
  - FLATULENCE [None]
  - DYSPEPSIA [None]
